FAERS Safety Report 5744907-1 (Version None)
Quarter: 2008Q2

REPORT INFORMATION
  Report Type: 
  Country: None (occurrence: None)
  Receive Date: 20080516
  Receipt Date: 20080501
  Transmission Date: 20081010
  Serious: Yes (Hospitalization)
  Sender: FDA-Public Use
  Company Number: 2006001190

PATIENT
  Age: 57 Year
  Sex: Female

DRUGS (4)
  1. ERLOTINIB (ERLOTINIB HCL) (TABLET) (ERLOTINIB HCL) [Suspect]
     Indication: NON-SMALL CELL LUNG CANCER
     Dosage: 150 MG, QD, ORAL
     Route: 048
     Dates: start: 20060330
  2. SERTRALINE [Concomitant]
  3. QUETIAPINE FUMARATE [Concomitant]
  4. ALPRAZOLAM [Concomitant]

REACTIONS (1)
  - MYOCLONUS [None]
